FAERS Safety Report 4599582-9 (Version None)
Quarter: 2005Q1

REPORT INFORMATION
  Report Type: 
  Country: None (occurrence: None)
  Receive Date: 20050303
  Receipt Date: 20050215
  Transmission Date: 20050727
  Serious: Yes (Hospitalization)
  Sender: FDA-Public Use
  Company Number: SUSI-2004-00596

PATIENT
  Age: 70 Year
  Sex: Female

DRUGS (5)
  1. AGRYLIN [Suspect]
     Indication: POLYCYTHAEMIA
     Dosage: 0.5 MG, 2X/DAY:BID
     Dates: start: 20040910, end: 20040912
  2. REQUIP [Concomitant]
  3. LEVODOPA-CARBIDOPA (LEVODOPRA, CARBIDOPA) [Concomitant]
  4. AMANTADINE (AMANTADINE) [Concomitant]
  5. SYNTHROID [Concomitant]

REACTIONS (14)
  - ABDOMINAL PAIN [None]
  - ASTHENIA [None]
  - CHEST PAIN [None]
  - DIZZINESS [None]
  - HEADACHE [None]
  - HYPOTHYROIDISM [None]
  - MUSCULOSKELETAL STIFFNESS [None]
  - MYALGIA [None]
  - NAUSEA [None]
  - OEDEMA PERIPHERAL [None]
  - PALPITATIONS [None]
  - PULMONARY EMBOLISM [None]
  - PULMONARY MASS [None]
  - UPPER RESPIRATORY TRACT CONGESTION [None]
